FAERS Safety Report 4893758-9 (Version None)
Quarter: 2006Q1

REPORT INFORMATION
  Report Type: 
  Country: None (occurrence: None)
  Receive Date: 20060127
  Receipt Date: 20060125
  Transmission Date: 20060701
  Serious: Yes (Other)
  Sender: FDA-Public Use
  Company Number: US-KINGPHARMUSA00001-K200600087

PATIENT
  Sex: Male

DRUGS (1)
  1. ALTACE [Suspect]
     Route: 048

REACTIONS (1)
  - THROMBOPHLEBITIS [None]
